FAERS Safety Report 11786892 (Version 1)
Quarter: 2015Q4

REPORT INFORMATION
  Report Type: Other
  Country: NL (occurrence: NL)
  Receive Date: 20151130
  Receipt Date: 20151130
  Transmission Date: 20160305
  Serious: Yes (Other)
  Sender: FDA-Public Use
  Company Number: NL-ENDO PHARMACEUTICALS INC-2015-004448

PATIENT
  Age: 41 Year
  Sex: Female

DRUGS (2)
  1. TESTIM [Suspect]
     Active Substance: TESTOSTERONE
     Indication: TRANSGENDER HORMONAL THERAPY
     Route: 061
     Dates: start: 2008, end: 2009
  2. TESTIM [Suspect]
     Active Substance: TESTOSTERONE
     Route: 061
     Dates: start: 2009

REACTIONS (2)
  - Tubular breast carcinoma [Unknown]
  - Off label use [Not Recovered/Not Resolved]

NARRATIVE: CASE EVENT DATE: 2008
